FAERS Safety Report 8312940-1 (Version None)
Quarter: 2012Q2

REPORT INFORMATION
  Report Type: 
  Country: None (occurrence: None)
  Receive Date: 20120426
  Receipt Date: 20120419
  Transmission Date: 20120825
  Serious: Yes (Hospitalization)
  Sender: FDA-Public Use
  Company Number: GB-UCBSA-055771

PATIENT
  Age: 58 Year
  Sex: Female
  Weight: 101 kg

DRUGS (2)
  1. CERTOLIZUMAB PEGOL [Suspect]
     Indication: RHEUMATOID ARTHRITIS
     Route: 058
     Dates: start: 20110106
  2. METHOTREXATE [Concomitant]

REACTIONS (2)
  - CARBON DIOXIDE INCREASED [None]
  - OXYGEN SATURATION DECREASED [None]
